FAERS Safety Report 9602561 (Version 1)
Quarter: 2013Q4

REPORT INFORMATION
  Report Type: Spontaneous
  Country: US (occurrence: US)
  Receive Date: 20131007
  Receipt Date: 20131007
  Transmission Date: 20140711
  Serious: Yes (Other)
  Sender: FDA-Public Use
  Company Number: US-PFIZER INC-2013283573

PATIENT
  Age: 82 Year
  Sex: Female
  Weight: 67.12 kg

DRUGS (6)
  1. GABAPENTIN [Suspect]
     Indication: MUSCLE SPASMS
     Dosage: 300 MG, DAILY
     Route: 048
     Dates: start: 2010
  2. GABAPENTIN [Suspect]
     Indication: PAIN IN EXTREMITY
  3. ALEVE [Suspect]
     Indication: PAIN IN EXTREMITY
     Dosage: UNK
  4. ALEVE [Suspect]
     Indication: MUSCLE SPASMS
  5. NORVASC [Concomitant]
     Indication: HYPERTENSION
     Dosage: UNK
  6. PROTONIX [Concomitant]
     Indication: GASTROOESOPHAGEAL REFLUX DISEASE
     Dosage: UNK

REACTIONS (12)
  - Off label use [Not Recovered/Not Resolved]
  - Suicidal ideation [Not Recovered/Not Resolved]
  - Depression [Not Recovered/Not Resolved]
  - Hypoaesthesia [Not Recovered/Not Resolved]
  - Paraesthesia [Not Recovered/Not Resolved]
  - Oedema peripheral [Not Recovered/Not Resolved]
  - Burning sensation [Not Recovered/Not Resolved]
  - Pain in extremity [Not Recovered/Not Resolved]
  - Dizziness [Not Recovered/Not Resolved]
  - Somnolence [Not Recovered/Not Resolved]
  - Fatigue [Not Recovered/Not Resolved]
  - Drug ineffective for unapproved indication [Not Recovered/Not Resolved]
